FAERS Safety Report 4951638-4 (Version None)
Quarter: 2006Q1

REPORT INFORMATION
  Report Type: 
  Country: None (occurrence: None)
  Receive Date: 20060317
  Receipt Date: 20060307
  Transmission Date: 20060701
  Serious: Yes (Death, Life-Threatening)
  Sender: FDA-Public Use
  Company Number: 2006014924

PATIENT
  Age: 67 Year
  Sex: Female
  Weight: 100 kg

DRUGS (1)
  1. LYRICA [Suspect]
     Indication: NEURALGIA
     Dosage: 225 MG (75 MG, 3 IN 1 D), ORAL
     Route: 048
     Dates: start: 20060105, end: 20060106

REACTIONS (4)
  - ACUTE PRERENAL FAILURE [None]
  - ILEUS PARALYTIC [None]
  - LABORATORY TEST ABNORMAL [None]
  - SHOCK [None]
